FAERS Safety Report 24967037 (Version 8)
Quarter: 2025Q3

REPORT INFORMATION
  Report Type: Spontaneous
  Country: JP (occurrence: JP)
  Receive Date: 20250213
  Receipt Date: 20250813
  Transmission Date: 20251021
  Serious: Yes (Death, Hospitalization, Other)
  Sender: JOHNSON AND JOHNSON
  Company Number: JP-JNJFOC-20250217222

PATIENT
  Age: 52 Year
  Sex: Female

DRUGS (12)
  1. UPTRAVI [Suspect]
     Active Substance: SELEXIPAG
     Indication: Pulmonary arterial hypertension
     Route: 048
     Dates: start: 20190821, end: 20190828
  2. UPTRAVI [Suspect]
     Active Substance: SELEXIPAG
     Route: 048
     Dates: start: 20190829, end: 20190904
  3. UPTRAVI [Suspect]
     Active Substance: SELEXIPAG
     Route: 048
     Dates: start: 20190905, end: 20191024
  4. UPTRAVI [Suspect]
     Active Substance: SELEXIPAG
     Route: 048
     Dates: start: 20191025, end: 20191121
  5. UPTRAVI [Suspect]
     Active Substance: SELEXIPAG
     Route: 048
     Dates: start: 20191122, end: 20210630
  6. UPTRAVI [Suspect]
     Active Substance: SELEXIPAG
     Route: 048
     Dates: start: 20210701, end: 20230213
  7. OPSUMIT [Suspect]
     Active Substance: MACITENTAN
     Indication: Pulmonary arterial hypertension
     Route: 048
     Dates: start: 20160318, end: 20230213
  8. ADCIRCA [Suspect]
     Active Substance: TADALAFIL
     Indication: Pulmonary arterial hypertension
     Route: 065
     Dates: start: 20150912, end: 20150915
  9. ADCIRCA [Suspect]
     Active Substance: TADALAFIL
     Route: 065
     Dates: start: 20150916, end: 20160115
  10. XARELTO [Concomitant]
     Active Substance: RIVAROXABAN
     Indication: Product used for unknown indication
     Route: 065
     Dates: start: 20150604, end: 20230213
  11. DIGOXIN [Concomitant]
     Active Substance: DIGOXIN
     Indication: Product used for unknown indication
     Route: 065
     Dates: start: 20150604, end: 20230213
  12. DESMOPRESSIN ACETATE [Concomitant]
     Active Substance: DESMOPRESSIN ACETATE
     Indication: Product used for unknown indication
     Route: 065
     Dates: start: 20150604, end: 20230213

REACTIONS (7)
  - Cardiac failure [Fatal]
  - Pulmonary arterial hypertension [Recovering/Resolving]
  - Right ventricular failure [Recovering/Resolving]
  - Lung opacity [Unknown]
  - Therapeutic product effect incomplete [Recovering/Resolving]
  - Lung opacity [Unknown]
  - Pulmonary vascular disorder [Unknown]

NARRATIVE: CASE EVENT DATE: 20160114
